FAERS Safety Report 9922256 (Version 1)
Quarter: 2014Q1

REPORT INFORMATION
  Report Type: Spontaneous
  Country: US (occurrence: None)
  Receive Date: 20140224
  Receipt Date: 20140224
  Transmission Date: 20141002
  Serious: Yes (Other)
  Sender: FDA-Public Use
  Company Number: None

PATIENT
  Age: 85 Year
  Sex: Female
  Weight: 78.02 kg

DRUGS (8)
  1. XELJANZ [Suspect]
     Indication: RHEUMATOID ARTHRITIS
     Route: 048
     Dates: start: 20131001
  2. CITRACAL [Concomitant]
  3. FISH OIL [Concomitant]
  4. IBUPROFEN [Concomitant]
  5. PREDNISONE [Concomitant]
  6. TRAMADOL [Concomitant]
  7. VERAPAMIL [Concomitant]
  8. VITAMIN D [Concomitant]

REACTIONS (2)
  - Fatigue [None]
  - Decreased appetite [None]
